FAERS Safety Report 6809504-5 (Version None)
Quarter: 2010Q2

REPORT INFORMATION
  Report Type: 
  Country: None (occurrence: None)
  Receive Date: 20100630
  Receipt Date: 20100622
  Transmission Date: 20101027
  Serious: Yes (Disabling)
  Sender: FDA-Public Use
  Company Number: US-WYE-H14989510

PATIENT
  Sex: Male
  Weight: 90.8 kg

DRUGS (1)
  1. RAPAMUNE [Suspect]
     Indication: PROPHYLAXIS AGAINST TRANSPLANT REJECTION
     Dosage: 3 MG DAILY FROM AN UNSPECIFIED DATE TO AN UNSPECIFIED DATE THEN 1 MG DAILY
     Route: 048

REACTIONS (2)
  - BONE PAIN [None]
  - PROTEINURIA [None]
